FAERS Safety Report 9739068 (Version 1)
Quarter: 2013Q4

REPORT INFORMATION
  Report Type: Spontaneous
  Country: US (occurrence: US)
  Receive Date: 20131209
  Receipt Date: 20131209
  Transmission Date: 20140711
  Serious: No
  Sender: FDA-Public Use
  Company Number: US-009507513-1310USA006395

PATIENT
  Age: 18 Year
  Sex: Female
  Weight: 40.36 kg

DRUGS (1)
  1. NEXPLANON [Suspect]
     Indication: CONTRACEPTION
     Dosage: UNK
     Route: 059
     Dates: start: 20120709

REACTIONS (2)
  - Implant site pain [Unknown]
  - Device difficult to use [Unknown]
